FAERS Safety Report 21689224 (Version 2)
Quarter: 2023Q1

REPORT INFORMATION
  Report Type: Report from Study
  Country: US (occurrence: US)
  Receive Date: 20221206
  Receipt Date: 20230103
  Transmission Date: 20230418
  Serious: Yes (Hospitalization)
  Sender: FDA-Public Use
  Company Number: US-ABBVIE-4225032

PATIENT
  Sex: Female

DRUGS (1)
  1. VENCLEXTA [Suspect]
     Active Substance: VENETOCLAX
     Indication: Product used for unknown indication
     Dosage: FORM STRENGTH: 100 MG?TAKE 1 TABLET BY MOUTH ONCE DAILY WITH FOOD AND A FULL GLASS OF WATER - KEE...
     Route: 048
     Dates: end: 202211

REACTIONS (2)
  - Influenza [Recovered/Resolved]
  - Blood test abnormal [Unknown]
